FAERS Safety Report 24143052 (Version 2)
Quarter: 2024Q3

REPORT INFORMATION
  Report Type: Spontaneous
  Country: US (occurrence: None)
  Receive Date: 20240726
  Receipt Date: 20240805
  Transmission Date: 20241016
  Serious: No
  Sender: ASTRAZENECA
  Company Number: 2024A165620

PATIENT
  Sex: Female

DRUGS (1)
  1. BYDUREON BCISE [Suspect]
     Active Substance: EXENATIDE
     Dosage: ONCE A WEEK
     Dates: start: 20240701

REACTIONS (9)
  - Injection site reaction [Unknown]
  - Injection site infection [Unknown]
  - Injection site haemorrhage [Unknown]
  - Skin discolouration [Unknown]
  - Cerebral disorder [Unknown]
  - Incorrect dose administered by device [Unknown]
  - Device malfunction [Unknown]
  - Drug dose omission by device [Unknown]
  - Device use issue [Unknown]
